FAERS Safety Report 9822833 (Version 2)
Quarter: 2014Q1

REPORT INFORMATION
  Report Type: Spontaneous
  Country: DE (occurrence: DE)
  Receive Date: 20140116
  Receipt Date: 20140116
  Transmission Date: 20141002
  Serious: Yes (Other)
  Sender: FDA-Public Use
  Company Number: DE-ASTRAZENECA-2013SE36456

PATIENT
  Age: 70 Year
  Sex: Female

DRUGS (8)
  1. NEXIUM MUPS [Suspect]
     Route: 048
     Dates: start: 1999, end: 2013
  2. ATACAND [Concomitant]
  3. ASS [Concomitant]
     Indication: MYOCARDIAL INFARCTION
  4. INEGY [Concomitant]
  5. KLIOGEST [Concomitant]
  6. BETAVERT [Concomitant]
     Indication: VERTIGO
  7. BISOPROLOL [Concomitant]
  8. EZETROL [Concomitant]

REACTIONS (9)
  - Syncope [Unknown]
  - Muscle twitching [Unknown]
  - Fatigue [Unknown]
  - Alopecia [Not Recovered/Not Resolved]
  - Muscular weakness [Unknown]
  - Nausea [Unknown]
  - Depression [Unknown]
  - Dry mouth [Unknown]
  - Vertigo [Unknown]
